FAERS Safety Report 11012463 (Version 1)
Quarter: 2015Q2

REPORT INFORMATION
  Report Type: Spontaneous
  Country: US (occurrence: None)
  Receive Date: 20150410
  Receipt Date: 20150410
  Transmission Date: 20150821
  Serious: Yes (Other)
  Sender: FDA-Public Use
  Company Number: None

PATIENT
  Age: 28 Year
  Sex: Female
  Weight: 55.34 kg

DRUGS (6)
  1. LORATIDINE [Concomitant]
     Active Substance: LORATADINE
  2. MAGNESIUM [Concomitant]
     Active Substance: MAGNESIUM
  3. BUPROPION HCL [Suspect]
     Active Substance: BUPROPION HYDROCHLORIDE
     Indication: DEPRESSION
     Dosage: ONE PILL QD ORAL
     Route: 048
     Dates: start: 20150408, end: 20150409
  4. FLUNISOLIDE. [Concomitant]
     Active Substance: FLUNISOLIDE
  5. RIBOFLAVIN [Concomitant]
     Active Substance: RIBOFLAVIN
  6. BUPROPION HCL [Suspect]
     Active Substance: BUPROPION HYDROCHLORIDE
     Indication: POST-TRAUMATIC STRESS DISORDER
     Dosage: ONE PILL QD ORAL
     Route: 048
     Dates: start: 20150408, end: 20150409

REACTIONS (3)
  - Anxiety [None]
  - Depression [None]
  - Drug ineffective [None]

NARRATIVE: CASE EVENT DATE: 20150328
